FAERS Safety Report 5659456-9 (Version None)
Quarter: 2008Q1

REPORT INFORMATION
  Report Type: 
  Country: None (occurrence: None)
  Receive Date: 20080307
  Receipt Date: 20080307
  Transmission Date: 20080703
  Serious: No
  Sender: FDA-Public Use
  Company Number: None

PATIENT
  Sex: Male
  Weight: 147 kg

DRUGS (13)
  1. PACLITAXEL [Suspect]
     Dosage: 50MG/M2 IV WEEKLY
     Route: 042
     Dates: start: 20080212, end: 20080225
  2. CISPLATIN [Suspect]
     Dosage: 25MG/M2 IV WEEKLY
     Route: 042
     Dates: start: 20080212, end: 20080225
  3. RADIATION [Suspect]
     Dosage: DAILY
     Dates: start: 20080212
  4. SIMVASTATIN [Concomitant]
  5. FUROSEMIDE [Concomitant]
  6. LEVOTHYROXINE SODIUM [Concomitant]
  7. FINASTERIDE [Concomitant]
  8. NORVASC [Concomitant]
  9. OMEPRAZOLE [Concomitant]
  10. HYDROCODONE BITARTRATE [Concomitant]
  11. COLACE [Concomitant]
  12. CENTRUM SILVER [Concomitant]
  13. OMEGA Q PLUS [Concomitant]

REACTIONS (3)
  - GASTROOESOPHAGEAL REFLUX DISEASE [None]
  - NAUSEA [None]
  - ORAL INTAKE REDUCED [None]
